FAERS Safety Report 20815107 (Version 1)
Quarter: 2022Q2

REPORT INFORMATION
  Report Type: Spontaneous
  Country: DE (occurrence: DE)
  Receive Date: 20220511
  Receipt Date: 20220511
  Transmission Date: 20220721
  Serious: Yes (Hospitalization)
  Sender: FDA-Public Use
  Company Number: DE-MYLANLABS-2022M1035001

PATIENT
  Sex: Male

DRUGS (6)
  1. CITALOPRAM [Suspect]
     Active Substance: CITALOPRAM HYDROBROMIDE
     Indication: Bipolar disorder
     Dosage: 60 MILLIGRAM (UP TO 60 MG)
     Route: 065
  2. MIRTAZAPINE [Suspect]
     Active Substance: MIRTAZAPINE
     Indication: Bipolar disorder
     Dosage: 90 MILLIGRAM (UP TO 90 MG)
     Route: 065
  3. LAMOTRIGINE [Suspect]
     Active Substance: LAMOTRIGINE
     Indication: Bipolar disorder
     Dosage: UNK
     Route: 065
  4. ARIPIPRAZOLE [Suspect]
     Active Substance: ARIPIPRAZOLE
     Indication: Bipolar disorder
     Dosage: UNK
     Route: 065
  5. MILNACIPRAN [Suspect]
     Active Substance: MILNACIPRAN
     Indication: Bipolar disorder
     Dosage: 200 MILLIGRAM (UP TO 200 MG)
     Route: 065
  6. DIMETHYL FUMARATE [Concomitant]
     Active Substance: DIMETHYL FUMARATE
     Indication: Relapsing-remitting multiple sclerosis
     Dosage: UNK UNK, QD (2 X 240 MG)
     Route: 065

REACTIONS (2)
  - Treatment failure [Unknown]
  - Off label use [Unknown]
